FAERS Safety Report 8295113-0 (Version None)
Quarter: 2012Q2

REPORT INFORMATION
  Report Type: 
  Country: None (occurrence: None)
  Receive Date: 20120416
  Receipt Date: 20120402
  Transmission Date: 20120825
  Serious: Yes (Death)
  Sender: FDA-Public Use
  Company Number: 1248420

PATIENT
  Age: 50 Year
  Sex: Male

DRUGS (2)
  1. VANCOMYCIN HYDROCHLORIDE [Suspect]
     Indication: CELLULITIS
  2. TIMENTIN [Suspect]
     Indication: CELLULITIS

REACTIONS (2)
  - TOXIC EPIDERMAL NECROLYSIS [None]
  - SEPTIC SHOCK [None]
